FAERS Safety Report 8989253 (Version 3)
Quarter: 2013Q1

REPORT INFORMATION
  Report Type: Spontaneous
  Country: UA (occurrence: None)
  Receive Date: 20121219
  Receipt Date: 20130103
  Transmission Date: 20140127
  Serious: Yes (Hospitalization)
  Sender: FDA-Public Use
  Company Number: UA-1195674

PATIENT
  Age: 70 Year
  Sex: Male
  Weight: 85 kg

DRUGS (3)
  1. TRAVATAN [Suspect]
     Indication: OPEN ANGLE GLAUCOMA
     Route: 047
     Dates: start: 20121123, end: 20121128
  2. BETOPTIC [Suspect]
     Indication: OPEN ANGLE GLAUCOMA
     Route: 047
     Dates: start: 20121123, end: 20121128
  3. TIMOLOL [Suspect]
     Indication: OPEN ANGLE GLAUCOMA
     Route: 047
     Dates: start: 20121123

REACTIONS (7)
  - Eyelid oedema [None]
  - Conjunctival oedema [None]
  - Erythema of eyelid [None]
  - Lacrimation increased [None]
  - Eye pain [None]
  - Ocular hyperaemia [None]
  - Conjunctivitis allergic [None]
